FAERS Safety Report 25852168 (Version 3)
Quarter: 2025Q4

REPORT INFORMATION
  Report Type: Report from Study
  Country: CA (occurrence: CA)
  Receive Date: 20250926
  Receipt Date: 20251127
  Transmission Date: 20260118
  Serious: Yes (Other)
  Sender: CELLTRION
  Company Number: CA-CELLTRION INC.-2025CA033977

PATIENT

DRUGS (19)
  1. OMALIZUMAB [Suspect]
     Active Substance: OMALIZUMAB
     Indication: Chronic spontaneous urticaria
     Dosage: 300 MILLIGRAM
     Route: 058
  2. OMALIZUMAB [Suspect]
     Active Substance: OMALIZUMAB
     Dosage: 150 MILLIGRAM
     Route: 058
  3. OMALIZUMAB [Suspect]
     Active Substance: OMALIZUMAB
     Dosage: 150 MILLIGRAM
     Route: 058
  4. OMALIZUMAB [Suspect]
     Active Substance: OMALIZUMAB
     Dosage: 150 MILLIGRAM
     Route: 058
  5. OMALIZUMAB [Suspect]
     Active Substance: OMALIZUMAB
     Dosage: 150 MILLIGRAM
     Route: 058
  6. OMALIZUMAB [Suspect]
     Active Substance: OMALIZUMAB
     Indication: Chronic spontaneous urticaria
     Dosage: UNK
     Route: 058
  7. OMALIZUMAB [Suspect]
     Active Substance: OMALIZUMAB
     Dosage: UNK
     Route: 058
  8. MONTELUKAST SODIUM [Suspect]
     Active Substance: MONTELUKAST SODIUM
     Indication: Chronic spontaneous urticaria
     Dosage: 1 DOSAGE FORM, 1 EVERY 1 DAYS
     Route: 048
  9. RUPATADINE FUMARATE [Suspect]
     Active Substance: RUPATADINE FUMARATE
     Indication: Product used for unknown indication
     Dosage: 10 MILLIGRAM, 2 EVERY 1 DAY
     Route: 065
  10. BILASTINE [Concomitant]
     Active Substance: BILASTINE
     Indication: Rhinitis allergic
     Dosage: 20 MILLIGRAM, 2 EVERY 1 DAY
     Route: 048
  11. BILASTINE [Concomitant]
     Active Substance: BILASTINE
     Dosage: 40 MILLIGRAM, 2 EVERY 1 DAY
     Route: 048
  12. BILASTINE [Concomitant]
     Active Substance: BILASTINE
     Indication: Rhinitis allergic
     Dosage: 1.0 DOSAGE FORMS 1 EVERY 1 DAYS
     Route: 048
  13. BILASTINE [Concomitant]
     Active Substance: BILASTINE
     Indication: Product used for unknown indication
     Dosage: 20 MILLIGRAM, 2 EVERY 1 DAY
     Route: 065
  14. BILASTINE [Concomitant]
     Active Substance: BILASTINE
     Indication: Product used for unknown indication
     Dosage: 40 MILLIGRAM, 2 EVERY 1 DAY
     Route: 065
  15. CETIRIZINE HYDROCHLORIDE [Concomitant]
     Active Substance: CETIRIZINE HYDROCHLORIDE
     Indication: Chronic spontaneous urticaria
     Dosage: 1 DOSAGE FORM, 1 EVERY 1 DAY
     Route: 048
  16. DYMISTA [Concomitant]
     Active Substance: AZELASTINE HYDROCHLORIDE\FLUTICASONE PROPIONATE
     Indication: Rhinitis allergic
     Dosage: 2 EVERY 1 DAY
  17. HYDROXYZINE [Concomitant]
     Active Substance: HYDROXYZINE HYDROCHLORIDE
     Indication: Chronic spontaneous urticaria
     Dosage: 1 DOSAGE FORM, 2 EVERY 1 DAY
     Route: 048
  18. CETIRIZINE HYDROCHLORIDE [Concomitant]
     Active Substance: CETIRIZINE HYDROCHLORIDE
     Indication: Chronic spontaneous urticaria
     Dosage: 1 DOSAGE FORM, 1 EVERY 1 DAY
     Route: 048
  19. ZANTAC [Concomitant]
     Active Substance: RANITIDINE HYDROCHLORIDE
     Indication: Chronic spontaneous urticaria
     Dosage: 1 DOSAGE FORM, 1 EVERY 1 DAY
     Route: 048

REACTIONS (29)
  - Rhinorrhoea [Recovered/Resolved]
  - Sneezing [Recovered/Resolved]
  - Asthenia [Recovered/Resolved]
  - Blood immunoglobulin E increased [Recovered/Resolved]
  - Cognitive disorder [Recovered/Resolved]
  - Dry mouth [Recovered/Resolved]
  - Erythema [Recovered/Resolved]
  - Eye pruritus [Recovered/Resolved]
  - Visual impairment [Recovered/Resolved]
  - Hydrocephalus [Recovered/Resolved]
  - Hypertension [Recovered/Resolved]
  - Memory impairment [Recovered/Resolved]
  - Insomnia [Recovered/Resolved]
  - Lacrimation increased [Recovered/Resolved]
  - Ill-defined disorder [Recovered/Resolved]
  - Migraine [Recovered/Resolved]
  - Malaise [Recovered/Resolved]
  - Nasal congestion [Recovered/Resolved]
  - Nausea [Recovered/Resolved]
  - Pruritus [Recovered/Resolved]
  - Pyrexia [Recovered/Resolved]
  - Rash pruritic [Recovered/Resolved]
  - Urticaria [Recovered/Resolved]
  - Angioedema [Recovered/Resolved]
  - Fatigue [Recovered/Resolved]
  - Headache [Recovered/Resolved]
  - Incorrect route of product administration [Recovered/Resolved]
  - Drug ineffective [Recovered/Resolved]
  - Underdose [Unknown]
